FAERS Safety Report 6302363-9 (Version None)
Quarter: 2009Q3

REPORT INFORMATION
  Report Type: 
  Country: None (occurrence: None)
  Receive Date: 20090810
  Receipt Date: 20090728
  Transmission Date: 20100115
  Serious: Yes (Other)
  Sender: FDA-Public Use
  Company Number: PHEH2009US08428

PATIENT
  Sex: Male

DRUGS (1)
  1. GLEEVEC [Suspect]
     Dosage: UNK
     Dates: start: 20050101, end: 20090601

REACTIONS (5)
  - BONE PAIN [None]
  - CHILLS [None]
  - DIARRHOEA [None]
  - MEMORY IMPAIRMENT [None]
  - NEOPLASM [None]
